FAERS Safety Report 11883674 (Version 8)
Quarter: 2017Q2

REPORT INFORMATION
  Report Type: Report from Study
  Country: CA (occurrence: CA)
  Receive Date: 20160101
  Receipt Date: 20170621
  Transmission Date: 20170829
  Serious: Yes (Life-Threatening, Hospitalization, Other)
  Sender: FDA-Public Use
  Company Number: CA-ROCHE-1623539

PATIENT
  Age: 73 Year
  Sex: Male

DRUGS (13)
  1. ESBRIET [Suspect]
     Active Substance: PIRFENIDONE
     Route: 048
     Dates: start: 201505, end: 20150820
  2. ESBRIET [Suspect]
     Active Substance: PIRFENIDONE
     Route: 048
     Dates: start: 20150330
  3. FLUTICASONE. [Concomitant]
     Active Substance: FLUTICASONE
  4. INSULIN [Concomitant]
     Active Substance: INSULIN NOS
  5. ROSUVASTATIN. [Concomitant]
     Active Substance: ROSUVASTATIN
  6. BETAHISTINE [Concomitant]
     Active Substance: BETAHISTINE
  7. TELMISARTAN. [Concomitant]
     Active Substance: TELMISARTAN
  8. ESBRIET [Suspect]
     Active Substance: PIRFENIDONE
     Dosage: UNKNOWN DOSE AND FREQUENCY
     Route: 048
     Dates: start: 2015
  9. JANUMET [Concomitant]
     Active Substance: METFORMIN HYDROCHLORIDE\SITAGLIPTIN PHOSPHATE
  10. BISOPROLOL [Concomitant]
     Active Substance: BISOPROLOL
  11. LANSOPRAZOLE. [Concomitant]
     Active Substance: LANSOPRAZOLE
  12. WARFARIN [Concomitant]
     Active Substance: WARFARIN
  13. ESBRIET [Suspect]
     Active Substance: PIRFENIDONE
     Indication: IDIOPATHIC PULMONARY FIBROSIS
     Route: 048
     Dates: start: 20150323

REACTIONS (13)
  - Lymphadenopathy mediastinal [Unknown]
  - Cerebrovascular accident [Unknown]
  - Granulomatous liver disease [Unknown]
  - Volvulus [Recovered/Resolved]
  - Pulmonary function test abnormal [Not Recovered/Not Resolved]
  - Peripheral arterial occlusive disease [Unknown]
  - Dilatation atrial [Unknown]
  - Splenic granuloma [Unknown]
  - Rash [Not Recovered/Not Resolved]
  - Bronchial secretion retention [Unknown]
  - Bronchiolitis [Unknown]
  - Pulmonary artery dilatation [Unknown]
  - Pulmonary hypertension [Unknown]

NARRATIVE: CASE EVENT DATE: 201506
